FAERS Safety Report 8219767-X (Version None)
Quarter: 2012Q1

REPORT INFORMATION
  Report Type: 
  Country: None (occurrence: None)
  Receive Date: 20120319
  Receipt Date: 20120313
  Transmission Date: 20120608
  Serious: No
  Sender: FDA-Public Use
  Company Number: US-PFIZER INC-2012066565

PATIENT
  Sex: Female
  Weight: 74.83 kg

DRUGS (5)
  1. FISH OIL [Concomitant]
     Dosage: UNK
  2. LATANOPROST [Suspect]
     Indication: GLAUCOMA
     Dosage: AT AN UNKNOWN DOSE INSTILLED IN HER RIGHT EYE ONCE A DAY
     Route: 047
     Dates: start: 20120206
  3. VITAMIN B COMPLEX CAP [Concomitant]
     Dosage: UNK
  4. ASCORBIC ACID [Concomitant]
     Dosage: UNK
  5. VITAMIN E [Concomitant]
     Dosage: UNK

REACTIONS (4)
  - EYELID OEDEMA [None]
  - RASH [None]
  - EYELIDS PRURITUS [None]
  - ECZEMA [None]
